FAERS Safety Report 9442042 (Version 2)
Quarter: 2013Q3

REPORT INFORMATION
  Report Type: Spontaneous
  Country: FR (occurrence: FR)
  Receive Date: 20130806
  Receipt Date: 20130925
  Transmission Date: 20140515
  Serious: Yes (Hospitalization, Other)
  Sender: FDA-Public Use
  Company Number: FR-ROCHE-1255966

PATIENT
  Sex: Female

DRUGS (3)
  1. LUCENTIS [Suspect]
     Indication: AGE-RELATED MACULAR DEGENERATION
     Route: 050
     Dates: start: 20130319
  2. LODOZ [Concomitant]
     Indication: HYPERTENSION
     Route: 065
     Dates: start: 1993, end: 20130506
  3. XALATAN [Concomitant]
     Indication: GLAUCOMA

REACTIONS (3)
  - Acute coronary syndrome [Recovering/Resolving]
  - Blood pressure systolic increased [Recovered/Resolved]
  - Feeling abnormal [Unknown]
